FAERS Safety Report 5325214-8 (Version None)
Quarter: 2007Q2

REPORT INFORMATION
  Report Type: 
  Country: None (occurrence: None)
  Receive Date: 20070515
  Receipt Date: 20070508
  Transmission Date: 20071010
  Serious: Yes (Other)
  Sender: FDA-Public Use
  Company Number: D0053125A

PATIENT
  Age: 33 Year
  Sex: Female

DRUGS (1)
  1. ZOVIRAX [Suspect]
     Indication: HERPES SIMPLEX
     Dosage: 400MG TWICE PER DAY
     Route: 048
     Dates: start: 20070420, end: 20070502

REACTIONS (2)
  - ABORTION SPONTANEOUS [None]
  - DRUG EXPOSURE DURING PREGNANCY [None]
